FAERS Safety Report 6998822-6 (Version None)
Quarter: 2010Q3

REPORT INFORMATION
  Report Type: 
  Country: None (occurrence: None)
  Receive Date: 20100920
  Receipt Date: 20070529
  Transmission Date: 20110219
  Serious: Yes (Hospitalization, Other)
  Sender: FDA-Public Use
  Company Number: US-ASTRAZENECA-2006UW23676

PATIENT
  Age: 16064 Day
  Sex: Male
  Weight: 65.3 kg

DRUGS (12)
  1. SEROQUEL [Suspect]
     Indication: INSOMNIA
     Route: 048
     Dates: start: 20040101, end: 20040101
  2. SEROQUEL [Suspect]
     Route: 048
     Dates: start: 20051012
  3. EFFEXOR [Concomitant]
     Dates: start: 20061101
  4. LORAZEPAM [Concomitant]
     Indication: ANXIETY
     Dosage: STRENGTH- 1MG  DOSE- ONE TO TWO TABLETS EVERY EIGHT HOURS AS NEEDED
     Route: 048
  5. IBUPROFEN [Concomitant]
     Indication: HEADACHE
     Dosage: STRENGTH- 200MG, 600 MG  DOSE- 200MG-600MG DAILY
     Route: 048
     Dates: start: 20051227
  6. DEPAKOTE [Concomitant]
     Indication: POST-TRAUMATIC STRESS DISORDER
     Dosage: STRENGTH- 250MG, 500MG  DOSE- 250MG-1000MG DAILY
     Dates: end: 20051216
  7. FOLIC ACID [Concomitant]
     Route: 048
     Dates: start: 20051216
  8. GEODON [Concomitant]
     Route: 048
     Dates: start: 20051216
  9. GEODON [Concomitant]
     Route: 048
     Dates: start: 20051216
  10. THIAMINE HCL [Concomitant]
     Route: 048
  11. OXYCODONE HCL [Concomitant]
     Indication: PAIN
     Dosage: STRENGTH 5 MG DOSE- 5 MG ONE TO TWO TABLET BY MOUTH EVERY 3-4 HOURS AS NEEDED
     Dates: start: 20051114
  12. TRAZODONE HCL [Concomitant]
     Dosage: STRENGTH- 50 MG DOSE- 50 MG -100MG DAILY

REACTIONS (2)
  - DIABETES MELLITUS [None]
  - PANCREATITIS [None]
